FAERS Safety Report 10302182 (Version 3)
Quarter: 2015Q3

REPORT INFORMATION
  Report Type: Spontaneous
  Country: US (occurrence: US)
  Receive Date: 20140714
  Receipt Date: 20150814
  Transmission Date: 20151125
  Serious: No
  Sender: FDA-Public Use
  Company Number: US-GILEAD-2013-0081040

PATIENT
  Age: 66 Year
  Sex: Female

DRUGS (3)
  1. LETAIRIS [Suspect]
     Active Substance: AMBRISENTAN
     Indication: PULMONARY HYPERTENSION
     Dosage: 5 MG, QD
     Route: 048
     Dates: start: 20110623
  2. LETAIRIS [Suspect]
     Active Substance: AMBRISENTAN
     Indication: ASTHMA
  3. LETAIRIS [Suspect]
     Active Substance: AMBRISENTAN
     Indication: SLEEP APNOEA SYNDROME

REACTIONS (3)
  - Nasopharyngitis [Unknown]
  - Syncope [Unknown]
  - Inner ear disorder [Unknown]

NARRATIVE: CASE EVENT DATE: 201307
